FAERS Safety Report 5383081-0 (Version None)
Quarter: 2007Q3

REPORT INFORMATION
  Report Type: 
  Country: None (occurrence: None)
  Receive Date: 20070710
  Receipt Date: 20070629
  Transmission Date: 20080115
  Serious: Yes (Hospitalization, Other)
  Sender: FDA-Public Use
  Company Number: GB-BAYER-200710716BNE

PATIENT
  Age: 81 Year
  Sex: Female

DRUGS (10)
  1. MOXIFLOXACIN HCL [Suspect]
     Indication: PNEUMONIA
     Dosage: TOTAL DAILY DOSE: 400 MG
     Route: 048
     Dates: start: 20070608, end: 20070611
  2. WARFARIN SODIUM [Interacting]
     Indication: ATRIAL FIBRILLATION
  3. CEFUROXIME [Concomitant]
     Indication: INFECTION
     Route: 042
     Dates: start: 20070605, end: 20070608
  4. DIGOXIN [Concomitant]
     Indication: ATRIAL FIBRILLATION
  5. ERYTHROMYCIN [Concomitant]
     Indication: PNEUMONIA
     Route: 048
     Dates: start: 20070605, end: 20070608
  6. FUROSEMIDE [Concomitant]
     Route: 048
  7. METFORMIN [Concomitant]
     Indication: DIABETES MELLITUS
     Route: 048
  8. PRAVASTATIN [Concomitant]
     Indication: MYOCARDIAL INFARCTION
  9. ROSIGLITAZONE [Concomitant]
     Indication: DIABETES MELLITUS
     Route: 048
     Dates: end: 20070605
  10. SOTALOL HYDROCHLORIDE [Concomitant]
     Indication: ATRIAL FIBRILLATION
     Route: 048

REACTIONS (2)
  - DRUG INTERACTION [None]
  - INTERNATIONAL NORMALISED RATIO INCREASED [None]
